FAERS Safety Report 20925078 (Version 1)
Quarter: 2022Q2

REPORT INFORMATION
  Report Type: Spontaneous
  Country: US (occurrence: US)
  Receive Date: 20220607
  Receipt Date: 20220607
  Transmission Date: 20220721
  Serious: No
  Sender: FDA-Public Use
  Company Number: US-GE HEALTHCARE-2022CSU001886

PATIENT
  Age: 80 Year
  Sex: Male

DRUGS (2)
  1. OMNIPAQUE [Suspect]
     Active Substance: IOHEXOL
     Indication: Computerised tomogram
     Dosage: 95 ML, SINGLE
     Route: 042
     Dates: start: 20220305, end: 20220305
  2. OMNIPAQUE [Suspect]
     Active Substance: IOHEXOL
     Indication: Headache

REACTIONS (2)
  - Cough [Recovered/Resolved]
  - Erythema [Recovered/Resolved]

NARRATIVE: CASE EVENT DATE: 20220305
